FAERS Safety Report 17066672 (Version 2)
Quarter: 2019Q4

REPORT INFORMATION
  Report Type: Spontaneous
  Country: NL (occurrence: NL)
  Receive Date: 20191122
  Receipt Date: 20191204
  Transmission Date: 20200122
  Serious: Yes (Other)
  Sender: FDA-Public Use
  Company Number: NL-MYLANLABS-2019M1113353

PATIENT
  Age: 70 Year
  Sex: Female

DRUGS (2)
  1. PROPRANOLOL [Suspect]
     Active Substance: PROPRANOLOL HYDROCHLORIDE
     Indication: MIGRAINE
     Dosage: 40 MILLIGRAM, QD
     Route: 065
  2. PROPRANOLOL [Suspect]
     Active Substance: PROPRANOLOL HYDROCHLORIDE
     Indication: HYPERTENSION
     Dosage: UNK (MORE THAN 80 MG)

REACTIONS (9)
  - Injury [Unknown]
  - Brain injury [Unknown]
  - Intervertebral disc disorder [Recovered/Resolved]
  - Anosmia [Unknown]
  - Insomnia [Unknown]
  - Rotator cuff syndrome [Recovered/Resolved]
  - Drug ineffective [Unknown]
  - Exercise tolerance decreased [Unknown]
  - Fatigue [Unknown]

NARRATIVE: CASE EVENT DATE: 2016
